FAERS Safety Report 4766810-6 (Version None)
Quarter: 2005Q3

REPORT INFORMATION
  Report Type: 
  Country: None (occurrence: None)
  Receive Date: 20050912
  Receipt Date: 20050607
  Transmission Date: 20060218
  Serious: Yes (Disabling)
  Sender: FDA-Public Use
  Company Number: US-MERCK-0506USA01442

PATIENT
  Age: 63 Year
  Sex: Male
  Weight: 98 kg

DRUGS (1)
  1. VIOXX [Suspect]
     Indication: POLYARTHRITIS
     Route: 048
     Dates: start: 20020124, end: 20040731

REACTIONS (5)
  - BRONCHITIS [None]
  - MYOCARDIAL INFARCTION [None]
  - ORAL INFECTION [None]
  - POSTOPERATIVE INFECTION [None]
  - RECURRENT CANCER [None]
